FAERS Safety Report 7459908-5 (Version None)
Quarter: 2011Q2

REPORT INFORMATION
  Report Type: 
  Country: None (occurrence: None)
  Receive Date: 20110504
  Receipt Date: 20110504
  Transmission Date: 20111010
  Serious: Yes (Life-Threatening)
  Sender: FDA-Public Use
  Company Number: None

PATIENT
  Age: 50 Year
  Sex: Female
  Weight: 55.7924 kg

DRUGS (1)
  1. PROTONIX [Suspect]
     Indication: GASTROOESOPHAGEAL REFLUX DISEASE
     Dosage: 1 TAB DAILY PO
     Route: 048
     Dates: start: 20090204, end: 20110204

REACTIONS (8)
  - SWELLING [None]
  - INSOMNIA [None]
  - FOOD INTOLERANCE [None]
  - WEIGHT DECREASED [None]
  - BEDRIDDEN [None]
  - HYPOPHAGIA [None]
  - LETHARGY [None]
  - MALAISE [None]
